FAERS Safety Report 14473194 (Version 2)
Quarter: 2018Q2

REPORT INFORMATION
  Report Type: Spontaneous
  Country: US (occurrence: US)
  Receive Date: 20180201
  Receipt Date: 20180615
  Transmission Date: 20180711
  Serious: Yes (Other)
  Sender: FDA-Public Use
  Company Number: US-ASTRAZENECA-2018SE12519

PATIENT
  Age: 870 Month
  Sex: Female
  Weight: 83.8 kg

DRUGS (8)
  1. JANUVIA [Concomitant]
     Active Substance: SITAGLIPTIN PHOSPHATE
     Route: 065
  2. METFORMIN [Concomitant]
     Active Substance: METFORMIN HYDROCHLORIDE
     Route: 065
  3. PREVACID [Suspect]
     Active Substance: LANSOPRAZOLE
     Route: 065
  4. FUROSEMIDE. [Concomitant]
     Active Substance: FUROSEMIDE
     Route: 065
  5. NEXIUM [Suspect]
     Active Substance: ESOMEPRAZOLE MAGNESIUM
     Indication: GASTROOESOPHAGEAL REFLUX DISEASE
     Route: 048
     Dates: start: 201003, end: 201607
  6. ALLOPURINOL. [Concomitant]
     Active Substance: ALLOPURINOL
     Route: 065
  7. ATENOLOL. [Concomitant]
     Active Substance: ATENOLOL
     Route: 065
  8. ATORVASTATIN [Concomitant]
     Active Substance: ATORVASTATIN
     Route: 065

REACTIONS (3)
  - Acute kidney injury [Unknown]
  - Chronic kidney disease [Unknown]
  - Renal failure [Unknown]

NARRATIVE: CASE EVENT DATE: 201108
